FAERS Safety Report 15283807 (Version 1)
Quarter: 2018Q3

REPORT INFORMATION
  Report Type: Spontaneous
  Country: US (occurrence: US)
  Receive Date: 20180801
  Receipt Date: 20180801
  Transmission Date: 20181010
  Serious: Yes (Life-Threatening, Disabling)
  Sender: FDA-Public Use
  Company Number: None

PATIENT
  Age: 26 Year
  Sex: Female
  Weight: 67.5 kg

DRUGS (1)
  1. LORAZEPAM. [Suspect]
     Active Substance: LORAZEPAM
     Indication: ANXIETY
     Dosage: ?          QUANTITY:1 TABLET(S);?
     Route: 048
     Dates: start: 20110825, end: 20160831

REACTIONS (10)
  - Accidental overdose [None]
  - Insomnia [None]
  - Fall [None]
  - Amnesia [None]
  - Road traffic accident [None]
  - Anxiety [None]
  - Pain [None]
  - Hypoaesthesia [None]
  - Confusional state [None]
  - Paraesthesia [None]

NARRATIVE: CASE EVENT DATE: 20110930
